FAERS Safety Report 23044315 (Version 1)
Quarter: 2023Q4

REPORT INFORMATION
  Report Type: Spontaneous
  Country: US (occurrence: None)
  Receive Date: 20231009
  Receipt Date: 20231009
  Transmission Date: 20240109
  Serious: No
  Sender: FDA-Public Use
  Company Number: 2023A224145

PATIENT
  Age: 37 Year
  Sex: Female

DRUGS (2)
  1. TAGRISSO [Suspect]
     Active Substance: OSIMERTINIB
     Dosage: 1 IN 1 DAY
     Route: 048
     Dates: start: 20230328
  2. GILOTRIF [Suspect]
     Active Substance: AFATINIB
     Indication: Non-small cell lung cancer
     Route: 048
     Dates: start: 20230328

REACTIONS (8)
  - Rash pruritic [Unknown]
  - Skin wound [Unknown]
  - Pruritus [Unknown]
  - Pain [Unknown]
  - Decreased appetite [Unknown]
  - Ageusia [Unknown]
  - Vomiting [Unknown]
  - Underdose [Unknown]
